FAERS Safety Report 6552861-8 (Version None)
Quarter: 2010Q1

REPORT INFORMATION
  Report Type: 
  Country: None (occurrence: None)
  Receive Date: 20100122
  Receipt Date: 20100107
  Transmission Date: 20100710
  Serious: Yes (Other)
  Sender: FDA-Public Use
  Company Number: 2010010029

PATIENT
  Age: 60 Year
  Sex: Female

DRUGS (4)
  1. TORSEMIDE [Suspect]
     Indication: HYPERTENSION
     Dosage: (4 MG), ORAL
     Route: 048
     Dates: start: 20091015, end: 20091201
  2. L-ASPARTIC ACID (ASPARTIC ACID) [Concomitant]
  3. OLMETEC (OLMESARTAN MEDOXOMIL) [Concomitant]
  4. ACTONEL [Concomitant]

REACTIONS (1)
  - PLATELET COUNT DECREASED [None]
